FAERS Safety Report 15144148 (Version 1)
Quarter: 2018Q3

REPORT INFORMATION
  Report Type: Spontaneous
  Country: US (occurrence: US)
  Receive Date: 20180713
  Receipt Date: 20180713
  Transmission Date: 20181010
  Serious: No
  Sender: FDA-Public Use
  Company Number: US-PERRIGO-17US025390

PATIENT
  Age: 18 Year
  Sex: Male

DRUGS (2)
  1. VITAMINS NOS [Concomitant]
     Active Substance: VITAMINS
     Indication: SUPPLEMENTATION THERAPY
     Dosage: UNK
     Route: 065
  2. MINOXIDIL. [Suspect]
     Active Substance: MINOXIDIL
     Indication: ALOPECIA
     Dosage: TOTAL OF 2 TO 5 ML, QD
     Route: 061
     Dates: start: 2017, end: 201707

REACTIONS (7)
  - Skin wrinkling [Unknown]
  - Product administered at inappropriate site [Recovered/Resolved]
  - Collagen disorder [Unknown]
  - Overdose [Recovered/Resolved]
  - Accidental exposure to product [Recovered/Resolved]
  - Insomnia [Unknown]
  - Swelling face [Unknown]

NARRATIVE: CASE EVENT DATE: 2017
